FAERS Safety Report 25665579 (Version 1)
Quarter: 2025Q3

REPORT INFORMATION
  Report Type: Spontaneous
  Country: US (occurrence: None)
  Receive Date: 20250811
  Receipt Date: 20250811
  Transmission Date: 20251020
  Serious: No
  Sender: FDA-CTU
  Company Number: None

PATIENT

DRUGS (1)
  1. OCREVUS [Suspect]
     Active Substance: OCRELIZUMAB

REACTIONS (5)
  - Pyrexia [None]
  - Balance disorder [None]
  - Fatigue [None]
  - Loss of personal independence in daily activities [None]
  - Therapy cessation [None]
